FAERS Safety Report 9628901 (Version 1)
Quarter: 2013Q4

REPORT INFORMATION
  Report Type: Spontaneous
  Country: ES (occurrence: ES)
  Receive Date: 20131017
  Receipt Date: 20131017
  Transmission Date: 20140711
  Serious: Yes (Other)
  Sender: FDA-Public Use
  Company Number: PHHY2013ES105604

PATIENT
  Age: 36 Year
  Sex: Female

DRUGS (4)
  1. HYDRALAZINE [Suspect]
     Indication: HYPERTENSION
     Dosage: 5 MG, UNK
     Route: 042
  2. METHYLDOPA [Suspect]
     Dosage: 250 MG, PER 8 HRS
  3. METHYLDOPA [Suspect]
     Dosage: 500 MG, PER 8 HR
  4. ASPIRIN [Suspect]
     Dosage: 100 MG, PER DAY

REACTIONS (7)
  - Blood uric acid increased [Recovered/Resolved]
  - Proteinuria [Recovered/Resolved]
  - Platelet count decreased [Recovered/Resolved]
  - Diplopia [Recovered/Resolved]
  - Headache [Recovered/Resolved]
  - Exposure during pregnancy [Unknown]
  - Normal newborn [Unknown]
